FAERS Safety Report 18328771 (Version 1)
Quarter: 2020Q3

REPORT INFORMATION
  Report Type: Spontaneous
  Country: US (occurrence: US)
  Receive Date: 20200930
  Receipt Date: 20200930
  Transmission Date: 20201103
  Serious: No
  Sender: FDA-Public Use
  Company Number: US-BIOGEN-2020BI00928139

PATIENT
  Sex: Female

DRUGS (1)
  1. TECFIDERA [Suspect]
     Active Substance: DIMETHYL FUMARATE
     Indication: MULTIPLE SCLEROSIS
     Route: 048
     Dates: start: 20151029

REACTIONS (9)
  - Pain [Unknown]
  - Mammogram abnormal [Unknown]
  - Arthritis [Unknown]
  - Anxiety [Unknown]
  - Peroneal nerve palsy [Unknown]
  - Hemiparesis [Unknown]
  - Mental impairment [Unknown]
  - Wound [Unknown]
  - Fall [Recovered/Resolved]
